FAERS Safety Report 18749357 (Version 1)
Quarter: 2021Q1

REPORT INFORMATION
  Report Type: Report from Study
  Country: US (occurrence: US)
  Receive Date: 20210116
  Receipt Date: 20210116
  Transmission Date: 20210419
  Serious: Yes (Other)
  Sender: FDA-Public Use
  Company Number: US-TORRENT-00010659

PATIENT
  Age: 17 Year
  Sex: Male

DRUGS (2)
  1. PERPHENAZINE. [Suspect]
     Active Substance: PERPHENAZINE
     Indication: BIPOLAR DISORDER
     Dosage: UNKNOWN
  2. CARBAMAZEPINE. [Suspect]
     Active Substance: CARBAMAZEPINE
     Indication: BIPOLAR DISORDER
     Dosage: UNKNOWN

REACTIONS (3)
  - Drug-induced liver injury [Recovered/Resolved]
  - Hepatitis cholestatic [Recovered/Resolved]
  - Hepatitis [Recovered/Resolved]
